FAERS Safety Report 6273309-7 (Version None)
Quarter: 2009Q3

REPORT INFORMATION
  Report Type: 
  Country: None (occurrence: None)
  Receive Date: 20090720
  Receipt Date: 20090706
  Transmission Date: 20100115
  Serious: Yes (Hospitalization)
  Sender: FDA-Public Use
  Company Number: DE-ROCHE-644324

PATIENT
  Sex: Female
  Weight: 76 kg

DRUGS (5)
  1. CAPECITABINE [Suspect]
     Route: 048
     Dates: start: 20090603
  2. METFORMIN HCL [Suspect]
     Indication: DIABETES MELLITUS
     Route: 048
  3. INSULIN BASAL [Concomitant]
     Indication: DIABETES MELLITUS
     Dosage: 0-0-16
  4. INSULIN RAPID [Concomitant]
     Indication: DIABETES MELLITUS
     Dosage: 0-16-4
  5. ENALAPRIL MALEATE [Concomitant]
     Indication: HYPERTENSION
     Route: 048

REACTIONS (2)
  - APHASIA [None]
  - CONFUSIONAL STATE [None]
